FAERS Safety Report 18279184 (Version 1)
Quarter: 2020Q3

REPORT INFORMATION
  Report Type: Spontaneous
  Country: US (occurrence: US)
  Receive Date: 20200917
  Receipt Date: 20200917
  Transmission Date: 20201103
  Serious: No
  Sender: FDA-Public Use
  Company Number: US-JNJFOC-20200922253

PATIENT
  Sex: Male

DRUGS (1)
  1. ELMIRON [Suspect]
     Active Substance: PENTOSAN POLYSULFATE SODIUM
     Indication: URINARY TRACT DISORDER
     Dosage: TAKING 1 IN THE MORNING AND 1 AT NIGHT
     Route: 048
     Dates: start: 2000, end: 20200908

REACTIONS (2)
  - Visual impairment [Unknown]
  - Visual acuity reduced [Unknown]
